FAERS Safety Report 16200460 (Version 2)
Quarter: 2019Q2

REPORT INFORMATION
  Report Type: Report from Study
  Country: DE (occurrence: DE)
  Receive Date: 20190416
  Receipt Date: 20190607
  Transmission Date: 20190711
  Serious: Yes (Other)
  Sender: FDA-Public Use
  Company Number: DE-EMD SERONO-9084477

PATIENT
  Age: 39 Year
  Sex: Female

DRUGS (2)
  1. REBIF [Suspect]
     Active Substance: INTERFERON BETA-1A
     Dosage: REASTATRTED WITH THE STARTERPACK.
  2. REBIF [Suspect]
     Active Substance: INTERFERON BETA-1A
     Indication: MULTIPLE SCLEROSIS
     Dosage: DISCONTINUED ON AN UNKNOWN DATE FOR 2-3 MONTHS
     Route: 058
     Dates: start: 201808

REACTIONS (2)
  - Headache [Not Recovered/Not Resolved]
  - Spinal cord disorder [Unknown]

NARRATIVE: CASE EVENT DATE: 201808
